FAERS Safety Report 7219475-8 (Version None)
Quarter: 2011Q1

REPORT INFORMATION
  Report Type: 
  Country: None (occurrence: None)
  Receive Date: 20110111
  Receipt Date: 20110101
  Transmission Date: 20110831
  Serious: Yes (Hospitalization, Other)
  Sender: FDA-Public Use
  Company Number: US-JNJFOC-20110100619

PATIENT
  Age: 51 Year
  Sex: Male

DRUGS (3)
  1. RISPERIDONE [Suspect]
     Dosage: 2 MG IN THE MORNING AND 6 MG IN THE EVENING
     Route: 048
  2. RISPERIDONE [Suspect]
     Route: 048
  3. RISPERIDONE [Suspect]
     Indication: PRODUCT USED FOR UNKNOWN INDICATION
     Dosage: 2 MG IN THE MORNING AND 4 MG IN THE EVENING
     Route: 048

REACTIONS (5)
  - PARANOIA [None]
  - STARING [None]
  - EXOPHTHALMOS [None]
  - HALLUCINATION, AUDITORY [None]
  - HOSPITALISATION [None]
